FAERS Safety Report 4870281-9 (Version None)
Quarter: 2005Q4

REPORT INFORMATION
  Report Type: 
  Country: None (occurrence: None)
  Receive Date: 20051228
  Receipt Date: 20051212
  Transmission Date: 20060501
  Serious: Yes (Death, Hospitalization)
  Sender: FDA-Public Use
  Company Number: JP_040402958

PATIENT
  Age: 70 Year
  Sex: Male
  Weight: 60.5 kg

DRUGS (11)
  1. GEMZAR [Suspect]
     Indication: NON-SMALL CELL LUNG CANCER RECURRENT
     Dosage: 1300 MG, OTHER, INTRAVENOUS
     Route: 042
     Dates: start: 20021001, end: 20021119
  2. TAXOTERE [Concomitant]
  3. LOXONIN (LOXOPROFEN SODIUM) [Concomitant]
  4. ZYRTEC [Concomitant]
  5. CODEINE PHOSPHATE (CODEINE PHOSPHATE) [Concomitant]
  6. MAGNESIUM OXIDE (MAGNESIUM OXIDE) [Concomitant]
  7. ZANTAC [Concomitant]
  8. GASMOTIN (MOSAPRIDE CITRATE) [Concomitant]
  9. METHYCOBAL (MECOBALAMIN) [Concomitant]
  10. MUCODYNE (CARBOCISTEINE) [Concomitant]
  11. LENDORM [Concomitant]

REACTIONS (10)
  - ADRENOMEGALY [None]
  - BODY TEMPERATURE DECREASED [None]
  - BONE PAIN [None]
  - CYANOSIS [None]
  - INTERSTITIAL LUNG DISEASE [None]
  - LYMPHADENOPATHY [None]
  - MALIGNANT NEOPLASM PROGRESSION [None]
  - PLEURAL EFFUSION [None]
  - PULMONARY FIBROSIS [None]
  - RESPIRATORY FAILURE [None]
